FAERS Safety Report 5280478-4 (Version None)
Quarter: 2007Q1

REPORT INFORMATION
  Report Type: 
  Country: None (occurrence: None)
  Receive Date: 20061221
  Receipt Date: 20050413
  Transmission Date: 20070707
  Serious: No
  Sender: FDA-Public Use
  Company Number: SP00413

PATIENT
  Age: 56 Year
  Sex: Male
  Weight: 142.8831 kg

DRUGS (11)
  1. XIFAXAN [Suspect]
     Indication: DIARRHOEA
     Dosage: SEE IMAGE
     Route: 048
     Dates: start: 20050228, end: 20050306
  2. XIFAXAN [Suspect]
     Indication: DIARRHOEA
     Dosage: SEE IMAGE
     Route: 048
     Dates: start: 20041101
  3. XIFAXAN [Suspect]
     Indication: DIARRHOEA
     Dosage: SEE IMAGE
     Route: 048
     Dates: start: 20050228
  4. HUMALOG [Concomitant]
  5. GLUCOPHAGE [Concomitant]
  6. ACCUPRIL [Concomitant]
  7. HYDROCHLOROTHIAZIDE [Concomitant]
  8. ALLOPURINOL [Concomitant]
  9. LOPRESSOR [Concomitant]
  10. LIPITOR [Concomitant]
  11. TRICOR [Concomitant]

REACTIONS (4)
  - CONDITION AGGRAVATED [None]
  - DIABETIC NEUROPATHY [None]
  - PAIN [None]
  - PARAESTHESIA [None]
